FAERS Safety Report 4317512-1 (Version None)
Quarter: 2004Q1

REPORT INFORMATION
  Report Type: 
  Country: None (occurrence: None)
  Receive Date: 20040312
  Receipt Date: 20040304
  Transmission Date: 20041129
  Serious: Yes (Death)
  Sender: FDA-Public Use
  Company Number: HQWYE566104MAR04

PATIENT
  Age: 42 Year
  Sex: Female

DRUGS (1)
  1. RAPAMUNE [Suspect]

REACTIONS (8)
  - ASCITES [None]
  - ASTHENIA [None]
  - DYSSTASIA [None]
  - HYPOTENSION [None]
  - NAUSEA [None]
  - PANCREATITIS [None]
  - SEPSIS [None]
  - VOMITING [None]
